FAERS Safety Report 10403926 (Version 1)
Quarter: 2014Q1

REPORT INFORMATION
  Report Type: Spontaneous
  Country: US (occurrence: None)
  Receive Date: 20130815
  Receipt Date: 20130815
  Transmission Date: 20141002
  Serious: Yes (Hospitalization, Other)
  Sender: FDA-Public Use
  Company Number: ADR-2013-00066

PATIENT
  Age: 10 Year
  Sex: Male

DRUGS (1)
  1. BACLOFEN  INTRATHECAL 500 MCG/ML [Suspect]
     Indication: MUSCLE SPASTICITY

REACTIONS (1)
  - Meningitis viral [None]
